FAERS Safety Report 24097353 (Version 4)
Quarter: 2025Q3

REPORT INFORMATION
  Report Type: Report from Study
  Country: KR (occurrence: KR)
  Receive Date: 20240716
  Receipt Date: 20250724
  Transmission Date: 20251021
  Serious: No
  Sender: TAKEDA
  Company Number: KR-TAKEDA-2024TUS070407

PATIENT
  Age: 65 Year
  Sex: Male
  Weight: 70 kg

DRUGS (10)
  1. VEDOLIZUMAB [Suspect]
     Active Substance: VEDOLIZUMAB
     Indication: Colitis ulcerative
     Dates: start: 20230925, end: 20240311
  2. VEDOLIZUMAB [Suspect]
     Active Substance: VEDOLIZUMAB
  3. Ganaflux [Concomitant]
     Indication: Gastritis
     Dosage: UNK UNK, QD
     Dates: start: 20210913
  4. ISONIAZID [Concomitant]
     Active Substance: ISONIAZID
     Indication: Tuberculosis
     Dosage: 400 MILLIGRAM, QD
     Dates: start: 20231023, end: 20240115
  5. ISONIAZID [Concomitant]
     Active Substance: ISONIAZID
     Dosage: 100 MILLIGRAM, QD
     Dates: end: 20240218
  6. RIFAMPIN [Concomitant]
     Active Substance: RIFAMPIN
     Indication: Tuberculosis
     Dosage: 600 MILLIGRAM, QD
     Dates: start: 20231023, end: 20240115
  7. RIFAMPIN [Concomitant]
     Active Substance: RIFAMPIN
     Dosage: 300 MILLIGRAM, QD
     Dates: end: 20240218
  8. MESALAMINE [Concomitant]
     Active Substance: MESALAMINE
     Dosage: 1200 MILLIGRAM, QD
     Dates: start: 20231023
  9. MESALAMINE [Concomitant]
     Active Substance: MESALAMINE
     Dosage: 3600 MILLIGRAM, QD
  10. AZATHIOPRINE [Concomitant]
     Active Substance: AZATHIOPRINE
     Dosage: 50 MILLIGRAM, QD
     Dates: start: 2017, end: 20231122

REACTIONS (3)
  - Latent tuberculosis [Recovered/Resolved]
  - Injection site swelling [Recovered/Resolved]
  - Injection site pruritus [Recovered/Resolved]

NARRATIVE: CASE EVENT DATE: 20231016
